FAERS Safety Report 14056597 (Version 1)
Quarter: 2017Q4

REPORT INFORMATION
  Report Type: Spontaneous
  Country: US (occurrence: US)
  Receive Date: 20171006
  Receipt Date: 20171006
  Transmission Date: 20180321
  Serious: Yes (Other)
  Sender: FDA-Public Use
  Company Number: US-BRISTOL-MYERS SQUIBB COMPANY-BMS-2017-088577

PATIENT
  Sex: Female
  Weight: 61.68 kg

DRUGS (2)
  1. FASLODEX [Concomitant]
     Active Substance: FULVESTRANT
     Indication: PRODUCT USED FOR UNKNOWN INDICATION
     Route: 065
  2. OPDIVO [Suspect]
     Active Substance: NIVOLUMAB
     Indication: BLADDER CANCER
     Route: 065

REACTIONS (7)
  - Dental caries [Unknown]
  - Dry throat [Unknown]
  - Purpura senile [Unknown]
  - Weight decreased [Unknown]
  - Amnesia [Unknown]
  - Rash vesicular [Unknown]
  - Auditory disorder [Unknown]
